FAERS Safety Report 4894819-0 (Version None)
Quarter: 2006Q1

REPORT INFORMATION
  Report Type: 
  Country: None (occurrence: None)
  Receive Date: 20060127
  Receipt Date: 20060127
  Transmission Date: 20060701
  Serious: Yes (Hospitalization)
  Sender: FDA-Public Use
  Company Number: None

PATIENT
  Sex: Male
  Weight: 101.3 kg

DRUGS (3)
  1. IMATINIB MEYSLATE 100MG  CAPSULES, NOVARTIS (GLEEVEC) [Suspect]
     Indication: GLIOBLASTOMA MULTIFORME
     Dosage: 400 MG DAILY PO
     Route: 048
     Dates: start: 20050901, end: 20051228
  2. HYDROXYUREA [Suspect]
     Indication: GLIOBLASTOMA MULTIFORME
     Dosage: 500 MG PO, BID
     Route: 048
     Dates: start: 20050901, end: 20051229
  3. RADOO1 [Suspect]
     Indication: GLIOBLASTOMA MULTIFORME
     Dosage: 5 MG PO DAILY
     Route: 048
     Dates: start: 20050928, end: 20051227

REACTIONS (12)
  - ABNORMAL BEHAVIOUR [None]
  - AGGRESSION [None]
  - ANGER [None]
  - ASTHENIA [None]
  - BALANCE DISORDER [None]
  - COGNITIVE DISORDER [None]
  - CONFUSIONAL STATE [None]
  - CONVULSION [None]
  - FALL [None]
  - FATIGUE [None]
  - INCONTINENCE [None]
  - MENTAL STATUS CHANGES [None]
